FAERS Safety Report 7722234-0 (Version None)
Quarter: 2011Q3

REPORT INFORMATION
  Report Type: 
  Country: None (occurrence: None)
  Receive Date: 20110831
  Receipt Date: 20110822
  Transmission Date: 20111222
  Serious: Yes (Death)
  Sender: FDA-Public Use
  Company Number: JP-GILEAD-2011-0043221

PATIENT
  Age: 37 Year
  Sex: Male

DRUGS (3)
  1. NORVIR [Concomitant]
     Indication: HIV INFECTION
     Dates: end: 20100430
  2. REYATAZ [Concomitant]
     Indication: HIV INFECTION
     Dates: end: 20100430
  3. VIREAD [Suspect]
     Indication: HIV INFECTION
     Route: 048
     Dates: start: 20090723, end: 20100430

REACTIONS (1)
  - DEATH [None]
